FAERS Safety Report 7484844-8 (Version None)
Quarter: 2011Q2

REPORT INFORMATION
  Report Type: 
  Country: None (occurrence: None)
  Receive Date: 20110517
  Receipt Date: 20100831
  Transmission Date: 20111010
  Serious: Yes (Hospitalization)
  Sender: FDA-Public Use
  Company Number: US-BAYER-201028675NA

PATIENT
  Age: 45 Year
  Sex: Female
  Weight: 115 kg

DRUGS (11)
  1. YASMIN [Suspect]
     Indication: ACNE
     Dosage: SHE USED IT WITHOUT PILL-FREE PERIOD FROM MAY-2009 TO OCT-2009
     Route: 048
     Dates: start: 20080617, end: 20091001
  2. YASMIN [Suspect]
     Indication: MENORRHAGIA
  3. CLARITIN [Concomitant]
  4. DROSPIRENONE AND ETHINYL ESTRADIOL [Suspect]
     Indication: MENORRHAGIA
  5. PROTONIX [Concomitant]
  6. COMBIVENT [Concomitant]
     Route: 055
     Dates: start: 20000101
  7. DROSPIRENONE AND ETHINYL ESTRADIOL [Suspect]
     Indication: ACNE
     Route: 048
     Dates: start: 20080617
  8. ADVAIR DISKUS 100/50 [Concomitant]
     Dosage: ADVAIR 250/50/50
     Route: 055
  9. ZANTAC [Concomitant]
  10. BONTRIL [Concomitant]
     Route: 048
  11. COMBIVENT [Concomitant]
     Route: 055
     Dates: start: 20000101

REACTIONS (7)
  - CHOLELITHIASIS [None]
  - CHOLECYSTITIS CHRONIC [None]
  - DIARRHOEA [None]
  - NAUSEA [None]
  - VOMITING [None]
  - EPIGASTRIC DISCOMFORT [None]
  - CHOLESTEROSIS [None]
